FAERS Safety Report 16822678 (Version 3)
Quarter: 2019Q4

REPORT INFORMATION
  Report Type: Spontaneous
  Country: IT (occurrence: IT)
  Receive Date: 20190918
  Receipt Date: 20191219
  Transmission Date: 20200122
  Serious: Yes (Other)
  Sender: FDA-Public Use
  Company Number: IT-MYLANLABS-2019M1086432

PATIENT
  Age: 20 Year
  Sex: Male

DRUGS (12)
  1. FLUOXETINE [Suspect]
     Active Substance: FLUOXETINE HYDROCHLORIDE
     Indication: OBSESSIVE THOUGHTS
     Dosage: UNK
  2. LAMICTAL [Suspect]
     Active Substance: LAMOTRIGINE
     Indication: BORDERLINE PERSONALITY DISORDER
     Dosage: UNK
  3. RIVOTRIL [Suspect]
     Active Substance: CLONAZEPAM
     Indication: OBSESSIVE THOUGHTS
     Dosage: UNK
  4. SEROQUEL [Suspect]
     Active Substance: QUETIAPINE FUMARATE
     Indication: BORDERLINE PERSONALITY DISORDER
     Dosage: UNK
  5. ENTUMIN [Suspect]
     Active Substance: CLOTHIAPINE
     Indication: OBSESSIVE THOUGHTS
     Dosage: UNK
  6. SEROQUEL [Suspect]
     Active Substance: QUETIAPINE FUMARATE
     Indication: OBSESSIVE THOUGHTS
     Dosage: UNK
  7. LAMICTAL [Suspect]
     Active Substance: LAMOTRIGINE
     Indication: OBSESSIVE THOUGHTS
     Dosage: UNK
  8. LATUDA [Suspect]
     Active Substance: LURASIDONE HYDROCHLORIDE
     Indication: BORDERLINE PERSONALITY DISORDER
     Dosage: UNK
     Route: 048
  9. ANAFRANIL [Suspect]
     Active Substance: CLOMIPRAMINE HYDROCHLORIDE
     Indication: BORDERLINE PERSONALITY DISORDER
     Dosage: UNK
  10. LATUDA [Suspect]
     Active Substance: LURASIDONE HYDROCHLORIDE
     Indication: PSYCHOTIC DISORDER
     Dosage: 10 UNK
     Route: 048
  11. RIVOTRIL [Suspect]
     Active Substance: CLONAZEPAM
     Indication: BORDERLINE PERSONALITY DISORDER
     Dosage: UNK
  12. OLANZAPINE. [Suspect]
     Active Substance: OLANZAPINE
     Indication: PSYCHOTIC DISORDER
     Dosage: UNK
     Route: 065

REACTIONS (7)
  - Nervousness [Not Recovered/Not Resolved]
  - Flat affect [Unknown]
  - Derealisation [Unknown]
  - Depersonalisation/derealisation disorder [Unknown]
  - Mood swings [Unknown]
  - Obsessive thoughts [Not Recovered/Not Resolved]
  - Off label use [Not Recovered/Not Resolved]
